FAERS Safety Report 17644459 (Version 1)
Quarter: 2020Q2

REPORT INFORMATION
  Report Type: Spontaneous
  Country: US (occurrence: US)
  Receive Date: 20200408
  Receipt Date: 20200408
  Transmission Date: 20200713
  Serious: No
  Sender: FDA-Public Use
  Company Number: None

PATIENT
  Age: 14 Year
  Sex: Female

DRUGS (1)
  1. TRETINOIN CAP 10MG [Suspect]
     Active Substance: TRETINOIN
     Route: 048
     Dates: start: 2020

REACTIONS (1)
  - Leukaemia [None]

NARRATIVE: CASE EVENT DATE: 20200408
